FAERS Safety Report 6958712-1 (Version None)
Quarter: 2010Q3

REPORT INFORMATION
  Report Type: 
  Country: None (occurrence: None)
  Receive Date: 20100831
  Receipt Date: 20100817
  Transmission Date: 20110219
  Serious: Yes (Hospitalization)
  Sender: FDA-Public Use
  Company Number: PHHY2010DE54975

PATIENT
  Sex: Female

DRUGS (5)
  1. CGS 20267 T30748+ [Suspect]
     Indication: BREAST CANCER
     Dosage: 2.5 MG, QD
     Route: 048
     Dates: start: 20090820
  2. CIPRAMIL [Concomitant]
  3. BROMAZANIL [Concomitant]
  4. METOPROLOL TARTRATE [Concomitant]
  5. RADIATION THERAPY [Concomitant]
     Dosage: UNK
     Dates: start: 20090901

REACTIONS (11)
  - ARTHRALGIA [None]
  - C-REACTIVE PROTEIN INCREASED [None]
  - CARDIAC MURMUR [None]
  - HEADACHE [None]
  - MUSCULOSKELETAL PAIN [None]
  - MYALGIA [None]
  - PYREXIA [None]
  - RED BLOOD CELL SEDIMENTATION RATE INCREASED [None]
  - RESTLESS LEGS SYNDROME [None]
  - TEMPORAL ARTERITIS [None]
  - WEIGHT DECREASED [None]
